FAERS Safety Report 14010204 (Version 2)
Quarter: 2017Q4

REPORT INFORMATION
  Report Type: Report from Study
  Country: US (occurrence: US)
  Receive Date: 20170926
  Receipt Date: 20171011
  Transmission Date: 20180321
  Serious: Yes (Other)
  Sender: FDA-Public Use
  Company Number: US-CONCORDIA PHARMACEUTICALS INC.-GSH201709-005442

PATIENT
  Age: 45 Year
  Sex: Male

DRUGS (4)
  1. RIBAVIRIN. [Suspect]
     Active Substance: RIBAVIRIN
     Indication: HEPATITIS C
     Route: 065
  2. RIBAVIRIN. [Suspect]
     Active Substance: RIBAVIRIN
     Route: 065
  3. RIBAVIRIN. [Suspect]
     Active Substance: RIBAVIRIN
     Route: 065
  4. HYDROXYCHLOROQUINE [Suspect]
     Active Substance: HYDROXYCHLOROQUINE
     Indication: PORPHYRIA NON-ACUTE
     Route: 065

REACTIONS (7)
  - Disease recurrence [Unknown]
  - Treatment failure [Unknown]
  - Off label use [Unknown]
  - Porphyria non-acute [Recovered/Resolved]
  - Serum ferritin increased [Unknown]
  - Weight decreased [Unknown]
  - Pancytopenia [Unknown]
